FAERS Safety Report 8511364-1 (Version None)
Quarter: 2012Q2

REPORT INFORMATION
  Report Type: 
  Country: None (occurrence: None)
  Receive Date: 20120629
  Receipt Date: 20120614
  Transmission Date: 20120825
  Serious: Yes (Other)
  Sender: FDA-Public Use
  Company Number: DSA_57985_2012

PATIENT
  Age: 67 Year
  Sex: Male

DRUGS (12)
  1. GLUCOPHAGE [Concomitant]
  2. METOPROLOL SUCCINATE [Concomitant]
  3. NOVALGIN [Concomitant]
  4. TORSEMIDE [Concomitant]
  5. PRAVASTATIN SODIUM [Suspect]
     Indication: PRODUCT USED FOR UNKNOWN INDICATION
     Dosage: (40 MG QID ORAL)
     Route: 048
     Dates: start: 20120504, end: 20120507
  6. ACETAMINOPHEN [Suspect]
     Indication: PRODUCT USED FOR UNKNOWN INDICATION
     Dosage: (1 G QID ORAL)
     Route: 048
     Dates: start: 20120502, end: 20120508
  7. CORDARONE [Suspect]
     Indication: ATRIAL FLUTTER
     Dosage: (200 MG QID ORAL)
     Route: 048
     Dates: start: 20120506, end: 20120507
  8. CORDARONE [Suspect]
     Indication: ATRIAL FIBRILLATION
     Dosage: (200 MG QID ORAL)
     Route: 048
     Dates: start: 20120506, end: 20120507
  9. ALDACTONE [Suspect]
     Indication: PRODUCT USED FOR UNKNOWN INDICATION
     Dosage: (25 MG QID ORAL)
     Route: 048
     Dates: end: 20120507
  10. ENALAPRIL MALEATE [Suspect]
     Indication: PRODUCT USED FOR UNKNOWN INDICATION
     Dosage: (2.5 MG QID ORAL)
     Route: 048
     Dates: start: 20120503, end: 20120507
  11. ASPIRIN [Concomitant]
  12. NEXIUM [Suspect]
     Indication: PRODUCT USED FOR UNKNOWN INDICATION
     Dosage: (40 MG QID ORAL)
     Route: 048
     Dates: start: 20120505, end: 20120508

REACTIONS (11)
  - ASPARTATE AMINOTRANSFERASE INCREASED [None]
  - HEPATOTOXICITY [None]
  - BLOOD POTASSIUM INCREASED [None]
  - BLOOD CREATININE INCREASED [None]
  - ALANINE AMINOTRANSFERASE DECREASED [None]
  - ATRIAL FIBRILLATION [None]
  - CARDIAC FAILURE [None]
  - EJECTION FRACTION DECREASED [None]
  - LIVER DISORDER [None]
  - MIXED LIVER INJURY [None]
  - CONDITION AGGRAVATED [None]
